FAERS Safety Report 10955282 (Version 1)
Quarter: 2015Q1

REPORT INFORMATION
  Report Type: Report from Study
  Country: IN (occurrence: IN)
  Receive Date: 20150326
  Receipt Date: 20150326
  Transmission Date: 20150721
  Serious: Yes (Death, Hospitalization)
  Sender: FDA-Public Use
  Company Number: IN-ROCHE-1556024

PATIENT
  Age: 52 Year
  Sex: Female

DRUGS (2)
  1. EXXURA [Suspect]
     Active Substance: PEGINTERFERON ALFA-2A
     Indication: HEPATITIS C
     Route: 058
     Dates: start: 20140720, end: 20150121
  2. COPEGUS [Suspect]
     Active Substance: RIBAVIRIN
     Indication: HEPATITIS C
     Dosage: 4 TABLET
     Route: 048
     Dates: start: 20140720, end: 20150121

REACTIONS (4)
  - Death [Fatal]
  - Gastric infection [Unknown]
  - Ascites [Unknown]
  - Infection [Unknown]

NARRATIVE: CASE EVENT DATE: 201502
